FAERS Safety Report 7993882-8 (Version None)
Quarter: 2011Q4

REPORT INFORMATION
  Report Type: 
  Country: None (occurrence: None)
  Receive Date: 20111220
  Receipt Date: 20111213
  Transmission Date: 20120403
  Serious: Yes (Hospitalization)
  Sender: FDA-Public Use
  Company Number: US-AMGEN-USASP2011066445

PATIENT
  Age: 73 Year
  Sex: Female

DRUGS (1)
  1. ENBREL [Suspect]
     Indication: RHEUMATOID ARTHRITIS
     Dosage: UNK
     Dates: start: 20000701, end: 20070101

REACTIONS (4)
  - KNEE ARTHROPLASTY [None]
  - CATARACT [None]
  - RHEUMATOID ARTHRITIS [None]
  - HIP ARTHROPLASTY [None]
